FAERS Safety Report 11703808 (Version 1)
Quarter: 2015Q4

REPORT INFORMATION
  Report Type: Spontaneous
  Country: VE (occurrence: VE)
  Receive Date: 20151106
  Receipt Date: 20151106
  Transmission Date: 20160304
  Serious: Yes (Other)
  Sender: FDA-Public Use
  Company Number: VE-ORION CORPORATION ORION PHARMA-ENTC2015-0626

PATIENT
  Sex: Female

DRUGS (5)
  1. CARMNSIN [Concomitant]
     Route: 065
  2. MILAX [Concomitant]
     Indication: BALNEOTHERAPY
     Route: 065
  3. STALEVO [Suspect]
     Active Substance: CARBIDOPA\ENTACAPONE\LEVODOPA
     Indication: PARKINSON^S DISEASE
     Route: 065
     Dates: start: 2011
  4. STALEVO [Suspect]
     Active Substance: CARBIDOPA\ENTACAPONE\LEVODOPA
     Route: 065
  5. STALEVO [Suspect]
     Active Substance: CARBIDOPA\ENTACAPONE\LEVODOPA
     Route: 065
     Dates: start: 2013

REACTIONS (4)
  - Fall [Unknown]
  - Gaze palsy [Unknown]
  - Drug ineffective [Unknown]
  - Weight decreased [Unknown]
